FAERS Safety Report 24570210 (Version 1)
Quarter: 2024Q4

REPORT INFORMATION
  Report Type: Spontaneous
  Country: US (occurrence: US)
  Receive Date: 20241031
  Receipt Date: 20241031
  Transmission Date: 20250114
  Serious: No
  Sender: LANNETT
  Company Number: 2023AVA00383

PATIENT
  Sex: Female

DRUGS (2)
  1. DICYCLOMINE HYDROCHLORIDE [Suspect]
     Active Substance: DICYCLOMINE HYDROCHLORIDE
     Indication: Abdominal pain upper
     Dosage: 10 MILLIGRAM, PRN
     Route: 065
  2. DICYCLOMINE HYDROCHLORIDE [Suspect]
     Active Substance: DICYCLOMINE HYDROCHLORIDE
     Indication: Muscle spasms

REACTIONS (2)
  - Somnolence [Unknown]
  - Drug ineffective [Unknown]
